FAERS Safety Report 18243565 (Version 4)
Quarter: 2021Q3

REPORT INFORMATION
  Report Type: Report from Study
  Country: US (occurrence: US)
  Receive Date: 20200908
  Receipt Date: 20210714
  Transmission Date: 20211014
  Serious: No
  Sender: FDA-Public Use
  Company Number: US-INCYTE CORPORATION-2020IN007401

PATIENT

DRUGS (7)
  1. JAKAFI [Suspect]
     Active Substance: RUXOLITINIB
     Indication: MYELOFIBROSIS
     Dosage: 20 MILLIGRAM, BID
     Route: 048
     Dates: start: 20200609
  2. JAKAFI [Suspect]
     Active Substance: RUXOLITINIB
     Dosage: UNK, BID
     Route: 048
  3. JAKAFI [Suspect]
     Active Substance: RUXOLITINIB
     Dosage: 15 MILLIGRAM, BID
     Route: 048
     Dates: start: 20200826
  4. JAKAFI [Suspect]
     Active Substance: RUXOLITINIB
     Dosage: 15 MILLIGRAM, BID
     Route: 048
     Dates: end: 20210202
  5. JAKAFI [Suspect]
     Active Substance: RUXOLITINIB
     Dosage: UNK, QD
     Route: 048
  6. JAKAFI [Suspect]
     Active Substance: RUXOLITINIB
     Dosage: 20 MILLIGRAM, BID
     Route: 048
     Dates: start: 20210105
  7. JAKAFI [Suspect]
     Active Substance: RUXOLITINIB
     Dosage: 20 MILLIGRAM, BID
     Route: 048

REACTIONS (9)
  - Anxiety [Unknown]
  - Vomiting [Unknown]
  - Dry mouth [Not Recovered/Not Resolved]
  - Tongue dry [Not Recovered/Not Resolved]
  - Thirst [Not Recovered/Not Resolved]
  - Feeding disorder [Unknown]
  - Intentional product use issue [Unknown]
  - Malaise [Recovering/Resolving]
  - Product availability issue [Unknown]

NARRATIVE: CASE EVENT DATE: 20210202
